FAERS Safety Report 9283288 (Version 1)
Quarter: 2013Q2

REPORT INFORMATION
  Report Type: Spontaneous
  Country: US (occurrence: US)
  Receive Date: 20130510
  Receipt Date: 20130510
  Transmission Date: 20140414
  Serious: No
  Sender: FDA-Public Use
  Company Number: US-GLAXOSMITHKLINE-A0994953A

PATIENT
  Age: 78 Year
  Sex: Female

DRUGS (3)
  1. TYKERB [Suspect]
     Indication: BREAST CANCER
     Dosage: 4TAB PER DAY
     Route: 048
     Dates: start: 20120920
  2. NORVASC [Concomitant]
  3. ZOCOR [Concomitant]

REACTIONS (2)
  - Vertigo [Recovered/Resolved]
  - Dizziness [Unknown]
